FAERS Safety Report 9581501 (Version 2)
Quarter: 2014Q1

REPORT INFORMATION
  Report Type: Spontaneous
  Country: ZA (occurrence: ZA)
  Receive Date: 20131002
  Receipt Date: 20140130
  Transmission Date: 20141002
  Serious: Yes (Other)
  Sender: FDA-Public Use
  Company Number: PHHY2013ZA108126

PATIENT
  Age: 25 Year
  Sex: Female

DRUGS (4)
  1. RITALIN [Suspect]
     Indication: ATTENTION DEFICIT/HYPERACTIVITY DISORDER
     Dosage: 1 DF, BID, (10 MG)
     Dates: start: 2004
  2. RITALIN [Suspect]
     Dosage: 1 DF, TID, (10 MG)
  3. RITALIN [Suspect]
     Dosage: 2 DF, TID, (10 MG)
     Dates: start: 2012
  4. CONCERTA [Suspect]
     Dosage: UNK UKN, UNK

REACTIONS (2)
  - Abortion spontaneous [Unknown]
  - Maternal exposure during pregnancy [Unknown]
